FAERS Safety Report 5757994-1 (Version None)
Quarter: 2008Q2

REPORT INFORMATION
  Report Type: 
  Country: None (occurrence: None)
  Receive Date: 20080602
  Receipt Date: 20080602
  Transmission Date: 20081010
  Serious: Yes (Other)
  Sender: FDA-Public Use
  Company Number: None

PATIENT
  Sex: Male
  Weight: 77.1115 kg

DRUGS (2)
  1. PROPECIA [Suspect]
     Indication: ANDROGENETIC ALOPECIA
     Dosage: 7 PILLS TOTAL  1 PER DAY PO
     Route: 048
     Dates: start: 20060301, end: 20060307
  2. PROPECIA [Suspect]
     Indication: ANDROGENETIC ALOPECIA
     Dosage: 7 PILLS TOTAL  1 PER DAY PO
     Route: 048
     Dates: start: 20070501, end: 20070507

REACTIONS (7)
  - ERECTILE DYSFUNCTION [None]
  - HYPOAESTHESIA OF GENITAL MALE [None]
  - LIBIDO DECREASED [None]
  - LOSS OF LIBIDO [None]
  - ORGASM ABNORMAL [None]
  - SEXUAL DYSFUNCTION [None]
  - TESTICULAR DISORDER [None]
